FAERS Safety Report 24912836 (Version 1)
Quarter: 2025Q1

REPORT INFORMATION
  Report Type: Spontaneous
  Country: ES (occurrence: ES)
  Receive Date: 20250131
  Receipt Date: 20250131
  Transmission Date: 20250409
  Serious: Yes (Death, Other)
  Sender: ABBVIE
  Company Number: ES-JNJFOC-20250179983

PATIENT

DRUGS (1)
  1. IMBRUVICA [Suspect]
     Active Substance: IBRUTINIB
     Indication: Chronic lymphocytic leukaemia
     Route: 048

REACTIONS (5)
  - Circulatory collapse [Fatal]
  - Hypertension [Unknown]
  - Cardiac failure [Unknown]
  - Haemorrhage [Unknown]
  - Atrial fibrillation [Unknown]
